FAERS Safety Report 19551920 (Version 1)
Quarter: 2021Q3

REPORT INFORMATION
  Report Type: Spontaneous
  Country: US (occurrence: US)
  Receive Date: 20210715
  Receipt Date: 20210715
  Transmission Date: 20211014
  Serious: Yes (Death)
  Sender: FDA-Public Use
  Company Number: US-AVEO ONCOLOGY-2021-AVEO-US003428

PATIENT

DRUGS (23)
  1. ACETAMINOPHEN. [Concomitant]
     Active Substance: ACETAMINOPHEN
  2. ENOXAPARIN [Concomitant]
     Active Substance: ENOXAPARIN
  3. MAGNESIUM SULFATE. [Concomitant]
     Active Substance: MAGNESIUM SULFATE
  4. ACETAMINOPHEN AND CODEINE [Concomitant]
     Active Substance: ACETAMINOPHEN\CODEINE PHOSPHATE
  5. DOCUSATE [Concomitant]
     Active Substance: DOCUSATE
  6. MORPHINE [Concomitant]
     Active Substance: MORPHINE
  7. ATORVASTATIN [Concomitant]
     Active Substance: ATORVASTATIN
  8. LIDOCAINE. [Concomitant]
     Active Substance: LIDOCAINE
  9. CEFAZOLIN [Concomitant]
     Active Substance: CEFAZOLIN
  10. FENTANYL. [Concomitant]
     Active Substance: FENTANYL
  11. FOTIVDA [Suspect]
     Active Substance: TIVOZANIB HYDROCHLORIDE
     Indication: RENAL CELL CARCINOMA
     Dosage: 1.34 MG, FOR 21 DAYS, FOLLOWED BY A 7?DAY BREAK
     Route: 048
  12. DRONABINOL. [Concomitant]
     Active Substance: DRONABINOL
  13. HYDROMORPHONE [Concomitant]
     Active Substance: HYDROMORPHONE
  14. LABETALOL [Concomitant]
     Active Substance: LABETALOL\LABETALOL HYDROCHLORIDE
  15. OXYCODONE [Concomitant]
     Active Substance: OXYCODONE
  16. PERCOCET [Concomitant]
     Active Substance: ACETAMINOPHEN\OXYCODONE HYDROCHLORIDE
  17. SENNA [Concomitant]
     Active Substance: SENNA LEAF\SENNOSIDES\SENNOSIDES A AND B
  18. FAMOTIDINE. [Concomitant]
     Active Substance: FAMOTIDINE
  19. MARINOL [Concomitant]
     Active Substance: DRONABINOL
  20. NALOXONE [Concomitant]
     Active Substance: NALOXONE
  21. HYDRALAZINE [Concomitant]
     Active Substance: HYDRALAZINE HYDROCHLORIDE
  22. NIFEDIPINE. [Concomitant]
     Active Substance: NIFEDIPINE
  23. MULTIVITAMIN [Concomitant]
     Active Substance: VITAMINS

REACTIONS (1)
  - Death [Fatal]
